FAERS Safety Report 5135801-8 (Version None)
Quarter: 2006Q4

REPORT INFORMATION
  Report Type: 
  Country: None (occurrence: None)
  Receive Date: 20061024
  Receipt Date: 20061024
  Transmission Date: 20070319
  Serious: Yes (Hospitalization)
  Sender: FDA-Public Use
  Company Number: None

PATIENT
  Age: 87 Year
  Sex: Male

DRUGS (2)
  1. COUMADIN [Suspect]
     Dosage: 7.5MG DAILY PO
     Route: 048
  2. PLAVIX [Suspect]
     Dosage: 75 MG QD PO
     Route: 048

REACTIONS (7)
  - CONVULSION [None]
  - FALL [None]
  - HAEMATOMA [None]
  - MENTAL STATUS CHANGES [None]
  - MUSCULAR WEAKNESS [None]
  - SUBDURAL HAEMATOMA [None]
  - VENTRICULAR TACHYCARDIA [None]
